FAERS Safety Report 21467690 (Version 1)
Quarter: 2022Q4

REPORT INFORMATION
  Report Type: Report from Study
  Country: US (occurrence: US)
  Receive Date: 20221017
  Receipt Date: 20221017
  Transmission Date: 20230112
  Serious: No
  Sender: FDA-Public Use
  Company Number: US-ABBVIE-4145075

PATIENT
  Sex: Female

DRUGS (5)
  1. HUMIRA [Suspect]
     Active Substance: ADALIMUMAB
     Indication: Hidradenitis
     Route: 058
  2. HUMIRA [Suspect]
     Active Substance: ADALIMUMAB
     Indication: Psoriasis
  3. Moderna [Concomitant]
     Indication: COVID-19 immunisation
     Dosage: FREQUENCY:  1-1-ONCE?FIRST DOSE
     Route: 030
     Dates: start: 20210304, end: 20210304
  4. Moderna [Concomitant]
     Indication: COVID-19 immunisation
     Dosage: SECOND DOSE?FREQUENCY:  1-1-ONCE
     Dates: start: 20210430, end: 20210430
  5. Moderna [Concomitant]
     Indication: COVID-19 immunisation
     Dosage: THIRD DOSE?FREQUENCY:  1-1-ONCE
     Dates: start: 20211215, end: 20211215

REACTIONS (1)
  - Arthralgia [Recovering/Resolving]
